FAERS Safety Report 12296324 (Version 2)
Quarter: 2016Q3

REPORT INFORMATION
  Report Type: Report from Study
  Country: CA (occurrence: CA)
  Receive Date: 20160422
  Receipt Date: 20160701
  Transmission Date: 20161109
  Serious: Yes (Other)
  Sender: FDA-Public Use
  Company Number: CA-BIOGEN-2016BI00225882

PATIENT
  Age: 41 Year
  Sex: Female

DRUGS (3)
  1. TECFIDERA [Suspect]
     Active Substance: DIMETHYL FUMARATE
     Indication: MULTIPLE SCLEROSIS
     Route: 048
     Dates: start: 20140411, end: 20140417
  2. VITAMIN D [Concomitant]
     Active Substance: CHOLECALCIFEROL
     Indication: PRODUCT USED FOR UNKNOWN INDICATION
     Route: 065
  3. TECFIDERA [Suspect]
     Active Substance: DIMETHYL FUMARATE
     Route: 048
     Dates: start: 20140418, end: 20150205

REACTIONS (18)
  - Visual impairment [Unknown]
  - Fatigue [Unknown]
  - Hemiparesis [Unknown]
  - Tinnitus [Unknown]
  - Insomnia [Unknown]
  - Musculoskeletal stiffness [Not Recovered/Not Resolved]
  - Cognitive disorder [Unknown]
  - Headache [Unknown]
  - Endometrial adenocarcinoma [Not Recovered/Not Resolved]
  - Abdominal distension [Unknown]
  - Paraesthesia [Not Recovered/Not Resolved]
  - Abdominal pain [Unknown]
  - Pain in extremity [Unknown]
  - Gastrointestinal disorder [Unknown]
  - Formication [Unknown]
  - Depression [Unknown]
  - Muscular weakness [Unknown]
  - Central nervous system lesion [Unknown]

NARRATIVE: CASE EVENT DATE: 201409
